FAERS Safety Report 4803629-1 (Version None)
Quarter: 2005Q4

REPORT INFORMATION
  Report Type: 
  Country: None (occurrence: None)
  Receive Date: 20051014
  Receipt Date: 20050215
  Transmission Date: 20060501
  Serious: Yes (Hospitalization)
  Sender: FDA-Public Use
  Company Number: 05P-163-0291250-00

PATIENT
  Age: 39 Year
  Sex: Male

DRUGS (4)
  1. KALETRA [Suspect]
     Indication: ACQUIRED IMMUNODEFICIENCY SYNDROME
     Dates: start: 20020101, end: 20030101
  2. KALETRA [Suspect]
     Indication: HIV TEST POSITIVE
     Dates: start: 20020101, end: 20030101
  3. KALETRA [Suspect]
     Indication: ACQUIRED IMMUNODEFICIENCY SYNDROME
     Dates: start: 20030502, end: 20030617
  4. KALETRA [Suspect]
     Indication: HIV TEST POSITIVE
     Dates: start: 20030502, end: 20030617

REACTIONS (4)
  - ALANINE AMINOTRANSFERASE INCREASED [None]
  - ASPARTATE AMINOTRANSFERASE INCREASED [None]
  - HEPATOTOXICITY [None]
  - HYPERBILIRUBINAEMIA [None]
